FAERS Safety Report 4630517-6 (Version None)
Quarter: 2005Q2

REPORT INFORMATION
  Report Type: 
  Country: None (occurrence: None)
  Receive Date: 20050408
  Receipt Date: 20040225
  Transmission Date: 20051028
  Serious: Yes (Hospitalization)
  Sender: FDA-Public Use
  Company Number: 12499448

PATIENT
  Age: 24 Year
  Sex: Male

DRUGS (7)
  1. ATAZANAVIR [Suspect]
     Indication: HIV INFECTION
     Dosage: 300MG PER DAY
     Route: 048
     Dates: start: 20030704
  2. LAMIVUDINE [Suspect]
     Indication: HIV INFECTION
     Dosage: 150MG TWICE PER DAY
     Dates: start: 20030704
  3. DIDANOSINE [Concomitant]
     Indication: HIV INFECTION
     Dosage: 250MG PER DAY
     Dates: start: 20030704
  4. KALETRA [Concomitant]
     Indication: HIV INFECTION
     Dosage: 3TAB TWICE PER DAY
     Route: 048
     Dates: start: 20030704
  5. AZITHROMYCIN [Concomitant]
     Dosage: 600MG PER DAY
     Dates: start: 20031205
  6. SULFAMETHOXAZOLE [Concomitant]
  7. TRIMETHOPRIM [Concomitant]

REACTIONS (10)
  - ABDOMINAL DISTENSION [None]
  - ABDOMINAL PAIN [None]
  - GASTRITIS [None]
  - HEPATOMEGALY [None]
  - ILEUS PARALYTIC [None]
  - LYMPHADENOPATHY [None]
  - NAUSEA [None]
  - PAIN [None]
  - VOMITING [None]
  - WEIGHT DECREASED [None]
